FAERS Safety Report 8278613-9 (Version None)
Quarter: 2012Q2

REPORT INFORMATION
  Report Type: 
  Country: None (occurrence: None)
  Receive Date: 20120412
  Receipt Date: 20120217
  Transmission Date: 20120825
  Serious: Yes (Hospitalization)
  Sender: FDA-Public Use
  Company Number: US-ASTRAZENECA-2012SE11776

PATIENT
  Age: 71 Year
  Sex: Female

DRUGS (1)
  1. NEXIUM [Suspect]
     Route: 048

REACTIONS (5)
  - BARRETT'S OESOPHAGUS [None]
  - ASPIRATION BRONCHIAL [None]
  - MALAISE [None]
  - PNEUMONIA [None]
  - GASTRIC HAEMORRHAGE [None]
